FAERS Safety Report 4668854-1 (Version None)
Quarter: 2005Q2

REPORT INFORMATION
  Report Type: 
  Country: None (occurrence: None)
  Receive Date: 20050523
  Receipt Date: 20050510
  Transmission Date: 20051028
  Serious: Yes (Hospitalization)
  Sender: FDA-Public Use
  Company Number: AU-MERCK-0505AUS00100

PATIENT
  Age: 77 Year
  Sex: Female
  Weight: 55 kg

DRUGS (10)
  1. ZOCOR [Suspect]
     Indication: MYOCARDIAL ISCHAEMIA
     Route: 048
  2. PERINDOPRIL [Suspect]
     Indication: CARDIAC FAILURE CONGESTIVE
     Route: 048
  3. FUROSEMIDE [Suspect]
     Indication: CARDIAC FAILURE CONGESTIVE
     Route: 048
  4. SPIRONOLACTONE [Suspect]
     Indication: CARDIAC FAILURE CONGESTIVE
     Route: 048
  5. WARFARIN SODIUM [Suspect]
     Indication: ARRHYTHMIA
     Route: 048
  6. DIGOXIN [Suspect]
     Route: 065
  7. ASPIRIN [Concomitant]
     Indication: MYOCARDIAL ISCHAEMIA
     Route: 048
  8. OMEGA-3 MARINE TRIGLYCERIDES [Concomitant]
     Route: 065
  9. AMIODARONE HYDROCHLORIDE [Concomitant]
     Indication: TACHYCARDIA
     Route: 065
  10. POTASSIUM CHLORIDE [Concomitant]
     Route: 048

REACTIONS (5)
  - CARDIAC ARREST [None]
  - CARDIAC FAILURE CONGESTIVE [None]
  - CHEST PAIN [None]
  - RENAL FAILURE ACUTE [None]
  - RHABDOMYOLYSIS [None]
